FAERS Safety Report 15308120 (Version 1)
Quarter: 2018Q3

REPORT INFORMATION
  Report Type: Spontaneous
  Country: RU (occurrence: RU)
  Receive Date: 20180822
  Receipt Date: 20180822
  Transmission Date: 20181010
  Serious: Yes (Other)
  Sender: FDA-Public Use
  Company Number: RU-BAYER-2018-155876

PATIENT
  Age: 48 Year
  Sex: Male

DRUGS (4)
  1. STIVARGA [Suspect]
     Active Substance: REGORAFENIB
     Indication: GASTROINTESTINAL STROMAL TUMOUR
     Dosage: DAILY DOSE 140 MG
     Dates: end: 201602
  2. PAZOPANIB [Concomitant]
     Active Substance: PAZOPANIB
     Indication: METASTASES TO LIVER
  3. PAZOPANIB [Concomitant]
     Active Substance: PAZOPANIB
     Indication: METASTASES TO PERITONEUM
     Dosage: UNK
  4. STIVARGA [Suspect]
     Active Substance: REGORAFENIB
     Indication: GASTROINTESTINAL STROMAL TUMOUR
     Dosage: DAILY DOSE OF 160 MG (3 WEEKS AND 1 WEEK BREAK)
     Route: 048
     Dates: start: 201307

REACTIONS (7)
  - Gastrointestinal stromal cancer [None]
  - Deep vein thrombosis [None]
  - Diarrhoea [None]
  - Hypothyroidism [Recovering/Resolving]
  - Metastases to peritoneum [None]
  - Metastases to liver [None]
  - Metastases to peritoneum [None]

NARRATIVE: CASE EVENT DATE: 201602
